FAERS Safety Report 9091642 (Version 1)
Quarter: 2013Q1

REPORT INFORMATION
  Report Type: Spontaneous
  Country: US (occurrence: US)
  Receive Date: 20130131
  Receipt Date: 20130131
  Transmission Date: 20140127
  Serious: No
  Sender: FDA-Public Use
  Company Number: US-ABBOTT-12P-163-0990595-00

PATIENT
  Age: 62 Year
  Sex: Female
  Weight: 113.5 kg

DRUGS (1)
  1. HUMIRA [Suspect]
     Indication: PRODUCT USED FOR UNKNOWN INDICATION

REACTIONS (5)
  - Injection site erythema [Unknown]
  - Injection site urticaria [Unknown]
  - Needle issue [Unknown]
  - Injection site mass [Unknown]
  - Pain [Unknown]
